FAERS Safety Report 11830962 (Version 1)
Quarter: 2015Q4

REPORT INFORMATION
  Report Type: Spontaneous
  Country: GB (occurrence: GB)
  Receive Date: 20151214
  Receipt Date: 20151214
  Transmission Date: 20160305
  Serious: Yes (Other)
  Sender: FDA-Public Use
  Company Number: GB-AUROBINDO-AUR-APL-2015-11298

PATIENT
  Age: 87 Year
  Sex: Male

DRUGS (5)
  1. FOSTAIR [Concomitant]
     Active Substance: BECLOMETHASONE\FORMOTEROL
     Indication: CHRONIC OBSTRUCTIVE PULMONARY DISEASE
     Dosage: 2 DF, TWO TIMES A DAY YEARS
     Route: 055
  2. CIPROFLOXACIN. [Suspect]
     Active Substance: CIPROFLOXACIN
     Indication: LOWER RESPIRATORY TRACT INFECTION
     Dosage: 500 MG, TWO TIMES A DAY
     Route: 048
     Dates: start: 20151027, end: 20151103
  3. TIOTROPIUM [Concomitant]
     Active Substance: TIOTROPIUM
     Indication: CHRONIC OBSTRUCTIVE PULMONARY DISEASE
     Dosage: 18 ?G, YEARS
     Route: 055
  4. BISOPROLOL [Concomitant]
     Active Substance: BISOPROLOL
     Indication: ATRIAL FIBRILLATION
     Dosage: 2.5 MG, TWO TIMES A DAY, YEARS, ONGOING
     Route: 048
  5. CLEXANE [Concomitant]
     Active Substance: ENOXAPARIN SODIUM
     Indication: IMMOBILE
     Dosage: 40 MG, ONGOING
     Route: 058
     Dates: start: 20151008

REACTIONS (2)
  - Peroneal nerve palsy [Not Recovered/Not Resolved]
  - Mobility decreased [Not Recovered/Not Resolved]

NARRATIVE: CASE EVENT DATE: 20151110
